FAERS Safety Report 13776226 (Version 2)
Quarter: 2017Q3

REPORT INFORMATION
  Report Type: Spontaneous
  Country: PT (occurrence: PT)
  Receive Date: 20170720
  Receipt Date: 20170828
  Transmission Date: 20171127
  Serious: Yes (Other)
  Sender: FDA-Public Use
  Company Number: PT-GILEAD-2017-0283504

PATIENT
  Age: 39 Year
  Sex: Female

DRUGS (1)
  1. HARVONI [Suspect]
     Active Substance: LEDIPASVIR\SOFOSBUVIR
     Indication: HEPATITIS C
     Dosage: 1 DF, QD
     Route: 065

REACTIONS (5)
  - Polyarthritis [Unknown]
  - Blood pressure increased [Unknown]
  - Immune reconstitution inflammatory syndrome [Unknown]
  - Pleuritic pain [Unknown]
  - Fatigue [Unknown]
